FAERS Safety Report 5593910-3 (Version None)
Quarter: 2007Q4

REPORT INFORMATION
  Report Type: 
  Country: None (occurrence: None)
  Receive Date: 20071218
  Receipt Date: 20070820
  Transmission Date: 20080405
  Serious: Yes (Hospitalization, Other)
  Sender: FDA-Public Use
  Company Number: 2007046913

PATIENT
  Age: 65 Year
  Sex: Male

DRUGS (1)
  1. BEXTRA [Suspect]
     Indication: PAIN
     Dosage: 40 MG (20 MG, 2 IN 1 D)
     Dates: start: 20030801

REACTIONS (1)
  - MYOCARDIAL INFARCTION [None]
